FAERS Safety Report 17830802 (Version 1)
Quarter: 2020Q2

REPORT INFORMATION
  Report Type: Spontaneous
  Country: FR (occurrence: FR)
  Receive Date: 20200527
  Receipt Date: 20200527
  Transmission Date: 20200714
  Serious: Yes (Other)
  Sender: FDA-Public Use
  Company Number: FR-ELI_LILLY_AND_COMPANY-FR202005006365

PATIENT
  Age: 62 Year
  Sex: Male
  Weight: 85 kg

DRUGS (8)
  1. UMULINE [Suspect]
     Active Substance: INSULIN HUMAN
     Indication: HYPERGLYCAEMIA
     Dosage: UNK, UNKNOWN
     Route: 058
     Dates: start: 20200409, end: 20200415
  2. PROPOFOL. [Suspect]
     Active Substance: PROPOFOL
     Indication: SEDATION
     Dosage: UNK, UNKNOWN
     Route: 042
     Dates: start: 20200405, end: 20200415
  3. SUFENTANIL [Suspect]
     Active Substance: SUFENTANIL
     Indication: SEDATION
     Dosage: UNK UNK, UNKNOWN
     Route: 042
     Dates: start: 20200405, end: 20200415
  4. MOVICOL APELSIN [Suspect]
     Active Substance: POLYETHYLENE GLYCOL 3350\POTASSIUM CHLORIDE\SODIUM BICARBONATE\SODIUM CHLORIDE
     Indication: CONSTIPATION
     Route: 048
     Dates: start: 20200408, end: 20200415
  5. HEPARINE SODIQUE [Concomitant]
     Active Substance: HEPARIN SODIUM
  6. KALETRA [Suspect]
     Active Substance: LOPINAVIR\RITONAVIR
     Indication: CORONAVIRUS INFECTION
     Route: 048
     Dates: start: 20200404, end: 20200414
  7. LOXEN L P [Concomitant]
     Active Substance: NICARDIPINE HYDROCHLORIDE
  8. CISATRACURIUM MYLAN [Suspect]
     Active Substance: CISATRACURIUM
     Indication: SEDATION
     Dosage: UNK, UNKNOWN
     Route: 042
     Dates: start: 20200405, end: 20200414

REACTIONS (1)
  - Hypertransaminasaemia [Recovered/Resolved]

NARRATIVE: CASE EVENT DATE: 20200410
